FAERS Safety Report 25419897 (Version 2)
Quarter: 2025Q3

REPORT INFORMATION
  Report Type: Spontaneous
  Country: US (occurrence: US)
  Receive Date: 20250610
  Receipt Date: 20250819
  Transmission Date: 20251020
  Serious: No
  Sender: SANOFI AVENTIS
  Company Number: US-SA-2025SA162830

PATIENT
  Age: 19 Year
  Sex: Female

DRUGS (3)
  1. DUPIXENT [Suspect]
     Active Substance: DUPILUMAB
     Indication: Nasal polyps
     Dosage: 300 MG, QOW
     Route: 058
     Dates: start: 20250530
  2. DUPIXENT [Suspect]
     Active Substance: DUPILUMAB
     Indication: Asthma
  3. JUNEL FE 1/20 [Suspect]
     Active Substance: ETHINYL ESTRADIOL\NORETHINDRONE ACETATE
     Indication: Contraception
     Dates: start: 202506, end: 202508

REACTIONS (11)
  - Rhinorrhoea [Recovered/Resolved]
  - Vaginal pH abnormal [Not Recovered/Not Resolved]
  - Seasonal allergy [Recovered/Resolved]
  - Hyperaesthesia teeth [Unknown]
  - Nasal congestion [Recovered/Resolved]
  - Acne [Not Recovered/Not Resolved]
  - Allergy to animal [Recovered/Resolved]
  - Vulvovaginal dryness [Not Recovered/Not Resolved]
  - Toothache [Recovered/Resolved]
  - Libido decreased [Not Recovered/Not Resolved]
  - Hormone level abnormal [Not Recovered/Not Resolved]

NARRATIVE: CASE EVENT DATE: 20250530
